FAERS Safety Report 15762066 (Version 1)
Quarter: 2018Q4

REPORT INFORMATION
  Report Type: Spontaneous
  Country: US (occurrence: US)
  Receive Date: 20181226
  Receipt Date: 20181226
  Transmission Date: 20190205
  Serious: Yes (Hospitalization)
  Sender: FDA-Public Use
  Company Number: US-MYLANLABS-2018M1095898

PATIENT
  Age: 30 Year
  Sex: Female
  Weight: 69 kg

DRUGS (1)
  1. EPINEPHRINE. [Suspect]
     Active Substance: EPINEPHRINE
     Indication: PRODUCT USED FOR UNKNOWN INDICATION
     Dosage: 1:1000 EPINEPHRINE
     Route: 050

REACTIONS (4)
  - Product selection error [Recovered/Resolved]
  - Blood pressure increased [Recovered/Resolved]
  - Electrocardiogram ST segment depression [Recovered/Resolved]
  - Heart rate increased [Recovered/Resolved]
